FAERS Safety Report 9991171 (Version 1)
Quarter: 2014Q1

REPORT INFORMATION
  Report Type: Report from Study
  Country: US (occurrence: US)
  Receive Date: 20140310
  Receipt Date: 20140310
  Transmission Date: 20141002
  Serious: No
  Sender: FDA-Public Use
  Company Number: US-ABBVIE-13P-163-1134005-00

PATIENT
  Age: 33 Year
  Sex: Female

DRUGS (5)
  1. HUMIRA [Suspect]
     Indication: RHEUMATOID ARTHRITIS
     Dates: start: 20130703
  2. PLAQUENIL [Concomitant]
     Indication: RHEUMATOID ARTHRITIS
  3. BOTOX [Concomitant]
     Indication: MIGRAINE
     Dosage: EVERY 3 MONTHS
  4. IBUPROFEN [Concomitant]
     Indication: HEADACHE
  5. NUVARING [Concomitant]
     Indication: CONTRACEPTION

REACTIONS (2)
  - Injection site extravasation [Not Recovered/Not Resolved]
  - Pain in extremity [Not Recovered/Not Resolved]
